FAERS Safety Report 7746565-3 (Version None)
Quarter: 2011Q3

REPORT INFORMATION
  Report Type: 
  Country: None (occurrence: None)
  Receive Date: 20110913
  Receipt Date: 20110908
  Transmission Date: 20111222
  Serious: Yes (Hospitalization, Other)
  Sender: FDA-Public Use
  Company Number: JP-BAYER-201013799BYL

PATIENT
  Age: 65 Year
  Sex: Male

DRUGS (12)
  1. FAMOTIDINE [Concomitant]
     Indication: GASTRIC ULCER
     Dosage: 20 MG, QD
     Dates: start: 20100329
  2. NEXAVAR [Suspect]
     Dosage: 200 MG, QD
     Route: 048
     Dates: start: 20100823, end: 20100826
  3. ATELEC [Concomitant]
     Indication: HYPERTENSION
     Dosage: 5 MG (DAILY DOSE), , ORAL
     Route: 048
     Dates: start: 20100329
  4. UNASYN [Concomitant]
     Indication: URINARY TRACT INFECTION
     Dosage: 3 G, BID
     Route: 041
     Dates: start: 20100727, end: 20100806
  5. NEXAVAR [Suspect]
     Indication: HEPATIC NEOPLASM MALIGNANT
     Dosage: AFTER BREAKFAST AND DINNER
     Route: 048
     Dates: start: 20100723, end: 20100728
  6. URSO 250 [Concomitant]
     Indication: HEPATITIS C
     Dosage: 100 MG, TID
     Route: 048
     Dates: start: 20100329
  7. PROCHLORPERAZINE [Concomitant]
     Indication: NAUSEA
     Dosage: 5 MG, TID
     Route: 048
     Dates: start: 20100416
  8. TIZANIDINE HCL [Concomitant]
     Indication: MUSCULOSKELETAL STIFFNESS
     Dosage: 1 MG, TID
     Route: 048
     Dates: start: 20100329
  9. DIOVAN [Concomitant]
     Indication: HYPERTENSION
     Dosage: 80 MG (DAILY DOSE), , ORAL
     Route: 048
     Dates: start: 20100329
  10. CONFATANIN [Concomitant]
     Indication: BACK PAIN
     Dosage: 60 MG, TID
     Route: 048
     Dates: start: 20100329
  11. MAGNESIUM SULFATE [Concomitant]
     Indication: CONSTIPATION
     Dosage: 330 MG, TID
     Route: 048
     Dates: start: 20100329
  12. OXYCONTIN [Concomitant]
     Indication: BACK PAIN
     Dosage: 20 MG, BID
     Route: 048
     Dates: start: 20100407

REACTIONS (3)
  - DEPRESSED LEVEL OF CONSCIOUSNESS [None]
  - HYPOTENSION [None]
  - PYREXIA [None]
